FAERS Safety Report 10225635 (Version 1)
Quarter: 2014Q2

REPORT INFORMATION
  Report Type: Spontaneous
  Country: US (occurrence: US)
  Receive Date: 20140609
  Receipt Date: 20140609
  Transmission Date: 20141212
  Serious: Yes (Other)
  Sender: FDA-Public Use
  Company Number: US-ASTELLAS-2013US011966

PATIENT
  Age: 67 Year
  Sex: Female

DRUGS (9)
  1. PROGRAF [Suspect]
     Indication: HEART TRANSPLANT
     Route: 048
     Dates: start: 20010410, end: 200204
  2. PROGRAF [Suspect]
     Route: 048
     Dates: start: 200206
  3. RAPAMUNE [Suspect]
     Indication: HEART TRANSPLANT
     Route: 065
     Dates: start: 200204, end: 200206
  4. PREDNISONE [Concomitant]
     Indication: PRODUCT USED FOR UNKNOWN INDICATION
     Route: 048
     Dates: start: 20010410
  5. FOLIC ACID [Concomitant]
     Indication: GASTRIC DISORDER
     Route: 048
     Dates: start: 20010410
  6. PROCRIT                            /00909301/ [Concomitant]
     Indication: HAEMOGLOBIN
     Route: 042
     Dates: start: 200204
  7. CITRIC ACID [Concomitant]
     Indication: RENAL DISORDER
     Route: 048
     Dates: start: 200204
  8. ANTINEOPLASTIC AGENTS [Concomitant]
     Indication: NEOPLASM MALIGNANT
     Dosage: 8 SESSIONS
     Route: 065
     Dates: start: 200204, end: 200210
  9. ANTINEOPLASTIC AGENTS [Concomitant]
     Route: 065
     Dates: start: 201211, end: 201304

REACTIONS (3)
  - Renal disorder [Unknown]
  - Kaposi^s sarcoma [Recovered/Resolved]
  - Lung disorder [Unknown]
